FAERS Safety Report 8432360-9 (Version None)
Quarter: 2012Q2

REPORT INFORMATION
  Report Type: 
  Country: None (occurrence: None)
  Receive Date: 20120613
  Receipt Date: 20120601
  Transmission Date: 20120825
  Serious: Yes (Hospitalization)
  Sender: FDA-Public Use
  Company Number: US-ELI_LILLY_AND_COMPANY-US201206001188

PATIENT
  Sex: Female

DRUGS (24)
  1. CENTURY [Concomitant]
     Dosage: UNK, UNKNOWN
  2. LIDODERM [Concomitant]
     Dosage: UNK, UNKNOWN
  3. NAPROXIN                           /00256201/ [Concomitant]
     Dosage: 500 MG, BID
  4. FISH OIL [Concomitant]
     Dosage: 200 MG, UNK
  5. NORCO [Concomitant]
     Dosage: UNK, UNKNOWN
  6. VITAMIN E [Concomitant]
     Dosage: UNK, UNKNOWN
  7. ACETAMINOPHEN [Concomitant]
     Dosage: 200 MG, UNKNOWN
  8. COLACE [Concomitant]
     Dosage: 100 MG, BID
  9. GLUCOSAMINE CHONDROITIN [Concomitant]
     Dosage: UNK, UNKNOWN
  10. SYNTHROID [Concomitant]
     Dosage: UNK, UNKNOWN
  11. NORVASC [Concomitant]
     Dosage: 2.5 MG, QD
  12. ASCORBIC ACID [Concomitant]
     Dosage: UNK, UNKNOWN
  13. FORTEO [Suspect]
     Dosage: 20 U, QD
     Dates: start: 20101101
  14. ASPIRIN [Concomitant]
     Dosage: 81 MG, QD
  15. LOTENSIN [Concomitant]
     Dosage: 5 MG, BID
  16. VITAMIN B-12 [Concomitant]
     Dosage: UNK, UNKNOWN
  17. MAGNESIUM OXIDE [Concomitant]
     Dosage: 400 MG, UNKNOWN
  18. LIQUIFILM TEARS [Concomitant]
     Dosage: UNK, BID
  19. OMNICEF [Concomitant]
     Dosage: 300 MG, BID
  20. FERROUS SULFATE TAB [Concomitant]
     Dosage: 325 MG, BID
  21. LIQUID CALCIUM                     /00751501/ [Concomitant]
     Dosage: UNK, UNKNOWN
  22. REMERON [Concomitant]
     Dosage: 15 MG, QD
  23. PROTONIX [Concomitant]
     Dosage: UNK, UNKNOWN
  24. SENOKOT [Concomitant]
     Dosage: UNK, BID

REACTIONS (5)
  - WEIGHT DECREASED [None]
  - HEADACHE [None]
  - MUSCULAR WEAKNESS [None]
  - URINARY TRACT INFECTION [None]
  - FALL [None]
